FAERS Safety Report 12783226 (Version 1)
Quarter: 2016Q3

REPORT INFORMATION
  Report Type: Spontaneous
  Country: US (occurrence: US)
  Receive Date: 20160927
  Receipt Date: 20160927
  Transmission Date: 20161109
  Serious: Yes (Hospitalization, Other)
  Sender: FDA-Public Use
  Company Number: US-BEH-2012031427

PATIENT
  Age: 35 Year
  Sex: Female
  Weight: 113.4 kg

DRUGS (23)
  1. BERINERT [Suspect]
     Active Substance: HUMAN C1-ESTERASE INHIBITOR
     Route: 042
     Dates: start: 20120204
  2. CINRYZE [Suspect]
     Active Substance: HUMAN C1-ESTERASE INHIBITOR
     Indication: HEREDITARY ANGIOEDEMA
     Dosage: ??-JAN-2012; 2000 UNITS; EVERY 3 DAYS
     Route: 042
     Dates: start: 20120103
  3. BUMEX [Concomitant]
     Active Substance: BUMETANIDE
  4. NORVASC [Concomitant]
     Active Substance: AMLODIPINE BESYLATE
     Indication: HYPERTENSION
  5. BENADRYL [Concomitant]
     Active Substance: DIPHENHYDRAMINE HYDROCHLORIDE
     Indication: PREMEDICATION
  6. COUMADIN [Concomitant]
     Active Substance: WARFARIN SODIUM
  7. CINRYZE [Suspect]
     Active Substance: HUMAN C1-ESTERASE INHIBITOR
     Indication: HEREDITARY ANGIOEDEMA
     Dosage: 1000 UNITS EVERY THREE DAYS
     Dates: start: 20120110
  8. ZANTAC [Concomitant]
     Active Substance: RANITIDINE HYDROCHLORIDE
  9. ATENOLOL. [Concomitant]
     Active Substance: ATENOLOL
     Indication: HYPERTENSION
  10. BERINERT [Suspect]
     Active Substance: HUMAN C1-ESTERASE INHIBITOR
     Indication: HEREDITARY ANGIOEDEMA
     Dosage: 2000 UNITS AS REQUIRED
  11. BERINERT [Suspect]
     Active Substance: HUMAN C1-ESTERASE INHIBITOR
     Route: 042
     Dates: start: 20120205
  12. MIRAPEX [Concomitant]
     Active Substance: PRAMIPEXOLE DIHYDROCHLORIDE
     Indication: RESTLESS LEGS SYNDROME
  13. SINGULAIR [Concomitant]
     Active Substance: MONTELUKAST SODIUM
     Indication: ASTHMA
  14. ZYRTEC [Concomitant]
     Active Substance: CETIRIZINE HYDROCHLORIDE
     Indication: HYPERSENSITIVITY
  15. ZOFRAN [Concomitant]
     Active Substance: ONDANSETRON HYDROCHLORIDE
     Indication: PREMEDICATION
     Dosage: 4 MG
  16. K-CHLOR [Concomitant]
  17. BERINERT [Suspect]
     Active Substance: HUMAN C1-ESTERASE INHIBITOR
     Dosage: 2000 UNITS
     Route: 042
     Dates: start: 20120214
  18. BENADRYL [Concomitant]
     Active Substance: DIPHENHYDRAMINE HYDROCHLORIDE
     Indication: URTICARIA
  19. BENADRYL [Concomitant]
     Active Substance: DIPHENHYDRAMINE HYDROCHLORIDE
     Indication: PHARYNGEAL OEDEMA
  20. CINRYZE [Suspect]
     Active Substance: HUMAN C1-ESTERASE INHIBITOR
     Dosage: 1500 UNITS EVERY THREE DAYS
     Dates: start: 20120218
  21. TOPAMAX [Concomitant]
     Active Substance: TOPIRAMATE
     Indication: SEIZURE
  22. RANEXA [Concomitant]
     Active Substance: RANOLAZINE
     Indication: ANGINA PECTORIS
  23. CARDIZEM [Concomitant]
     Active Substance: DILTIAZEM HYDROCHLORIDE
     Indication: HYPERTENSION

REACTIONS (32)
  - Incontinence [Unknown]
  - Urticaria [Recovered/Resolved]
  - Unevaluable event [Not Recovered/Not Resolved]
  - Disorientation [Unknown]
  - Tremor [Unknown]
  - Headache [Not Recovered/Not Resolved]
  - Pyrexia [Recovered/Resolved]
  - Seizure [Recovered/Resolved]
  - Sepsis [Recovered/Resolved]
  - Laryngeal oedema [Recovering/Resolving]
  - Dizziness [Unknown]
  - Paralysis [Unknown]
  - Feeling abnormal [Unknown]
  - Nausea [Unknown]
  - Face oedema [Recovered/Resolved]
  - Seizure [Unknown]
  - Feeling abnormal [Recovered/Resolved]
  - Pain [Unknown]
  - Dysphagia [Recovered/Resolved]
  - Postoperative adhesion [Not Recovered/Not Resolved]
  - Thrombosis [Unknown]
  - Loss of consciousness [Unknown]
  - Asthenia [Unknown]
  - Tracheostomy malfunction [Not Recovered/Not Resolved]
  - Secretion discharge [Unknown]
  - Chest pain [Recovered/Resolved]
  - Headache [Unknown]
  - Device related infection [Recovered/Resolved]
  - Pruritus [Recovered/Resolved]
  - Abdominal pain [Recovered/Resolved]
  - Fall [Recovered/Resolved]
  - Dysphonia [Unknown]

NARRATIVE: CASE EVENT DATE: 20120103
